FAERS Safety Report 14900580 (Version 1)
Quarter: 2018Q2

REPORT INFORMATION
  Report Type: Spontaneous
  Country: US (occurrence: US)
  Receive Date: 20180429
  Receipt Date: 20180429
  Transmission Date: 20180711
  Serious: Yes (Other)
  Sender: FDA-Public Use
  Company Number: None

PATIENT
  Age: 48 Year
  Sex: Female
  Weight: 101.25 kg

DRUGS (1)
  1. BUPRENORPHINE HCL [Suspect]
     Active Substance: BUPRENORPHINE HYDROCHLORIDE
     Indication: DEPENDENCE
     Dosage: ?          QUANTITY:2 TABLET(S);?
     Route: 060

REACTIONS (4)
  - Mouth ulceration [None]
  - Dyspepsia [None]
  - Withdrawal syndrome [None]
  - Burning sensation [None]

NARRATIVE: CASE EVENT DATE: 20180420
